FAERS Safety Report 4577435-X (Version None)
Quarter: 2005Q1

REPORT INFORMATION
  Report Type: 
  Country: None (occurrence: None)
  Receive Date: 20050208
  Receipt Date: 20050121
  Transmission Date: 20050727
  Serious: Yes (Hospitalization)
  Sender: FDA-Public Use
  Company Number: A02200500189

PATIENT
  Age: 85 Year
  Sex: Female

DRUGS (6)
  1. STILNOX - (ZOLPIDEM) - TABLET - 10 MG [Suspect]
     Dosage: 10 MG OD, ORAL
     Route: 048
     Dates: start: 20040924, end: 20041109
  2. HALDOL [Suspect]
     Dosage: 1 MG OD, ORAL
     Route: 048
     Dates: start: 20041026
  3. PIPRAM - (PIPEMIDIC ACID) - TABLET - 400 MG [Suspect]
     Dosage: 400 MG OD, ORAL
     Route: 048
     Dates: end: 20041109
  4. COZAAR [Suspect]
     Dosage: 25 MG OD, ORAL
     Route: 048
     Dates: end: 20041109
  5. OMEPRAZOLE [Suspect]
     Dosage: 20 MG OD, ORAL
     Route: 048
     Dates: start: 20041021
  6. ARTHROTEC [Suspect]
     Dosage: 50 MG BID, ORAL
     Route: 048
     Dates: start: 20041021, end: 20041109

REACTIONS (3)
  - ATRIOVENTRICULAR BLOCK FIRST DEGREE [None]
  - CAROTID BRUIT [None]
  - MALAISE [None]
